FAERS Safety Report 23139371 (Version 5)
Quarter: 2024Q3

REPORT INFORMATION
  Report Type: Spontaneous
  Country: US (occurrence: US)
  Receive Date: 20231102
  Receipt Date: 20240828
  Transmission Date: 20241017
  Serious: Yes (Other)
  Sender: BRISTOL MYERS SQUIBB
  Company Number: US-BRISTOL-MYERS SQUIBB COMPANY-2023-156741

PATIENT
  Age: 60 Year
  Sex: Male

DRUGS (2)
  1. LENALIDOMIDE [Suspect]
     Active Substance: LENALIDOMIDE
     Indication: Plasma cell myeloma
     Dosage: TAKE 1 CAPSULE BY MOUTH DAILY FOR 21 DAYS WITH 7 DAY REST PERIOD. DO NOT BREAK, CHEW, OR OPEN CAPSUL
     Route: 048
     Dates: start: 20231030
  2. LENALIDOMIDE [Suspect]
     Active Substance: LENALIDOMIDE
     Dosage: TAKE 1 CAPSULE BY MOUTH EVERY DAY FOR 21 DAYS WITH 7 DAY REST PERIOD. DO NOT BREAK, CHEW OR OPEN CAP
     Route: 048

REACTIONS (3)
  - Musculoskeletal stiffness [Recovering/Resolving]
  - Constipation [Recovered/Resolved]
  - Diarrhoea [Not Recovered/Not Resolved]

NARRATIVE: CASE EVENT DATE: 20230101
